FAERS Safety Report 5664164-4 (Version None)
Quarter: 2008Q1

REPORT INFORMATION
  Report Type: 
  Country: None (occurrence: None)
  Receive Date: 20080312
  Receipt Date: 20080227
  Transmission Date: 20080703
  Serious: Yes (Hospitalization)
  Sender: FDA-Public Use
  Company Number: 230558J08USA

PATIENT
  Age: 47 Year
  Sex: Male
  Weight: 99.7913 kg

DRUGS (9)
  1. REBIF [Suspect]
     Indication: MULTIPLE SCLEROSIS
     Dosage: 44 MCG, 3 IN 1 WEEKS, SUBCUTANEOUS
     Route: 058
     Dates: start: 20060208, end: 20080106
  2. BACLOFEN [Suspect]
     Indication: MUSCLE SPASTICITY
  3. LEXAPRO [Concomitant]
  4. NAPROXEN [Concomitant]
  5. METOPROLOL TARTRATE [Concomitant]
  6. SPIRONOLACTONE [Concomitant]
  7. OXYBUTYNIN CHLORIDE [Concomitant]
  8. CARDURA [Concomitant]
  9. LORAZEPAM [Concomitant]

REACTIONS (7)
  - CHEST DISCOMFORT [None]
  - CONVULSION [None]
  - DEVICE FAILURE [None]
  - INCORRECT DOSE ADMINISTERED [None]
  - OVERDOSE [None]
  - PARAPARESIS [None]
  - QUADRIPARESIS [None]
